FAERS Safety Report 11805091 (Version 2)
Quarter: 2016Q1

REPORT INFORMATION
  Report Type: Spontaneous
  Country: US (occurrence: US)
  Receive Date: 20151206
  Receipt Date: 20160122
  Transmission Date: 20160525
  Serious: Yes (Hospitalization, Other)
  Sender: FDA-Public Use
  Company Number: US-ASTRAZENECA-2015SF20270

PATIENT
  Age: 54 Year
  Sex: Male
  Weight: 71.2 kg

DRUGS (1)
  1. NEXIUM [Suspect]
     Active Substance: ESOMEPRAZOLE MAGNESIUM
     Indication: GASTRIC DISORDER
     Route: 048

REACTIONS (6)
  - Haematemesis [Not Recovered/Not Resolved]
  - Intentional product misuse [Unknown]
  - Gastric ulcer [Unknown]
  - Dehydration [Unknown]
  - Haematochezia [Not Recovered/Not Resolved]
  - Gastric haemorrhage [Not Recovered/Not Resolved]
